FAERS Safety Report 9957344 (Version 1)
Quarter: 2014Q1

REPORT INFORMATION
  Report Type: Report from Study
  Country: US (occurrence: US)
  Receive Date: 20140304
  Receipt Date: 20140304
  Transmission Date: 20141002
  Serious: No
  Sender: FDA-Public Use
  Company Number: US-ABBVIE-13P-163-1096893-00

PATIENT
  Age: 66 Year
  Sex: Female

DRUGS (8)
  1. HUMIRA [Suspect]
     Indication: RHEUMATOID ARTHRITIS
     Dates: start: 20121207
  2. HUMALOG PEN [Concomitant]
     Indication: DIABETES MELLITUS
     Dosage: SLIDING SCALE
  3. METFORMIN [Concomitant]
     Indication: DIABETES MELLITUS
  4. LOSARTAN POTASSIUM [Concomitant]
     Indication: DRUG THERAPY
     Dosage: IN THE MORNING
  5. OMEPRAZOLE [Concomitant]
     Indication: GASTROOESOPHAGEAL REFLUX DISEASE
  6. SALINE [Concomitant]
     Indication: PRODUCT USED FOR UNKNOWN INDICATION
  7. IBUPROFEN [Concomitant]
     Indication: ARTHRALGIA
  8. LANTUS [Concomitant]
     Indication: DIABETES MELLITUS

REACTIONS (5)
  - Epistaxis [Not Recovered/Not Resolved]
  - Cough [Not Recovered/Not Resolved]
  - Headache [Not Recovered/Not Resolved]
  - Pruritus [Not Recovered/Not Resolved]
  - Formication [Not Recovered/Not Resolved]
